FAERS Safety Report 16847252 (Version 2)
Quarter: 2019Q4

REPORT INFORMATION
  Report Type: Report from Study
  Country: MY (occurrence: MY)
  Receive Date: 20190924
  Receipt Date: 20191020
  Transmission Date: 20200122
  Serious: Yes (Hospitalization)
  Sender: FDA-Public Use
  Company Number: PHHY2019MY138048

PATIENT
  Age: 70 Year
  Sex: Male

DRUGS (5)
  1. VOTRIENT [Suspect]
     Active Substance: PAZOPANIB HYDROCHLORIDE
     Dosage: 400 MG, QD
     Route: 048
     Dates: start: 201910
  2. VOTRIENT [Suspect]
     Active Substance: PAZOPANIB HYDROCHLORIDE
     Dosage: 600 MG, QD
     Route: 048
  3. INSULIN [Concomitant]
     Active Substance: INSULIN NOS
     Indication: DIABETES MELLITUS
     Dosage: UNK UNK, BID
     Route: 065
  4. VOTRIENT [Suspect]
     Active Substance: PAZOPANIB HYDROCHLORIDE
     Indication: RENAL CELL CARCINOMA
     Dosage: 800 MG, QD
     Route: 048
     Dates: start: 20190512
  5. VOTRIENT [Suspect]
     Active Substance: PAZOPANIB HYDROCHLORIDE
     Dosage: 400 MG, QD
     Route: 048
     Dates: start: 20190828, end: 20190918

REACTIONS (19)
  - Loss of consciousness [Unknown]
  - Fall [Unknown]
  - Somnolence [Unknown]
  - Decreased appetite [Unknown]
  - Nausea [Unknown]
  - Cerebral thrombosis [Unknown]
  - Headache [Unknown]
  - Skin atrophy [Unknown]
  - Vomiting [Unknown]
  - Blister [Recovering/Resolving]
  - Depressed mood [Not Recovered/Not Resolved]
  - Purulent discharge [Unknown]
  - Anxiety [Unknown]
  - Pain [Unknown]
  - Diarrhoea [Unknown]
  - Eye swelling [Recovering/Resolving]
  - Feeding disorder [Unknown]
  - Dizziness postural [Unknown]
  - Fatigue [Unknown]

NARRATIVE: CASE EVENT DATE: 20190831
